FAERS Safety Report 25816816 (Version 1)
Quarter: 2025Q3

REPORT INFORMATION
  Report Type: Spontaneous
  Country: BR (occurrence: BR)
  Receive Date: 20250918
  Receipt Date: 20250918
  Transmission Date: 20251021
  Serious: Yes (Other)
  Sender: COLGATE
  Company Number: BR-COLGATE PALMOLIVE COMPANY-20250902015

PATIENT

DRUGS (4)
  1. SODIUM FLUORIDE\STANNOUS FLUORIDE [Suspect]
     Active Substance: SODIUM FLUORIDE\STANNOUS FLUORIDE
     Dates: start: 202508, end: 2025
  2. STANNOUS FLUORIDE [Suspect]
     Active Substance: STANNOUS FLUORIDE
     Dates: start: 2025, end: 2025
  3. SODIUM FLUORIDE\STANNOUS FLUORIDE [Suspect]
     Active Substance: SODIUM FLUORIDE\STANNOUS FLUORIDE
     Dates: start: 202508, end: 2025
  4. PERIOGARD [Suspect]
     Active Substance: CHLORHEXIDINE GLUCONATE
     Dates: start: 2025, end: 2025

REACTIONS (17)
  - Oral disorder [Recovering/Resolving]
  - Aphthous ulcer [Recovering/Resolving]
  - Oral mucosal discolouration [Recovering/Resolving]
  - Tongue discolouration [Recovering/Resolving]
  - Oral pain [Recovering/Resolving]
  - Oral discomfort [Recovering/Resolving]
  - Lip exfoliation [Recovering/Resolving]
  - Lip pruritus [Recovering/Resolving]
  - Gastrointestinal sounds abnormal [Recovering/Resolving]
  - Feeding disorder [Recovering/Resolving]
  - Oral pain [Recovering/Resolving]
  - Oral discomfort [Recovering/Resolving]
  - Tongue dry [Recovering/Resolving]
  - Glossitis [Recovering/Resolving]
  - Lip pain [Recovering/Resolving]
  - Emotional distress [Recovering/Resolving]
  - Loss of personal independence in daily activities [Recovering/Resolving]

NARRATIVE: CASE EVENT DATE: 20250101
